FAERS Safety Report 8518733-4 (Version None)
Quarter: 2012Q3

REPORT INFORMATION
  Report Type: 
  Country: None (occurrence: None)
  Receive Date: 20120718
  Receipt Date: 20120710
  Transmission Date: 20120928
  Serious: Yes (Other)
  Sender: FDA-Public Use
  Company Number: PHEH2012US011381

PATIENT
  Sex: Female

DRUGS (26)
  1. XYZAL [Concomitant]
     Dosage: UNK UKN, UNK
  2. SPIRIVA [Concomitant]
     Dosage: UNK UKN, UNK
  3. ALBUTEROL SULFATE [Concomitant]
     Dosage: UNK UKN, UNK
  4. COMBIVENT [Concomitant]
     Dosage: UNK UKN, UNK
  5. MIRAPEX [Concomitant]
     Dosage: UNK UKN, UNK
  6. ZOLOFT [Concomitant]
     Dosage: UNK UKN, UNK
  7. SYMBICORT [Concomitant]
     Dosage: UNK UKN, UNK
  8. IBUPROFEN [Concomitant]
     Dosage: UNK UKN, UNK
  9. XANAX [Concomitant]
     Dosage: UNK UKN, UNK
  10. ATROVENT [Concomitant]
     Dosage: UNK UKN, UNK
  11. PATANOL [Concomitant]
     Dosage: UNK UKN, UNK
  12. SINGULAIR [Concomitant]
     Dosage: UNK UKN, UNK
  13. XOLAIR [Concomitant]
     Dosage: UNK UKN, UNK
  14. DIOVAN [Suspect]
     Dosage: 80 MG, UNK
  15. BUSPAR [Concomitant]
     Dosage: UNK UKN, UNK
  16. VITAMIN D [Concomitant]
     Dosage: UNK UKN, UNK
  17. NORCO [Concomitant]
     Dosage: UNK UKN, UNK
  18. DALIRESP [Suspect]
     Dosage: UNK UKN, UNK
  19. VITAMIN B-12 [Concomitant]
     Dosage: UNK UKN, UNK
  20. ZANTAC [Concomitant]
     Dosage: UNK UKN, UNK
  21. TUSSIONEX [Concomitant]
     Dosage: UNK UKN, UNK
  22. DIOVAN [Suspect]
     Dosage: 160 MG, UNK
  23. PREVACID [Concomitant]
     Dosage: UNK UKN, UNK
  24. OXYGEN [Concomitant]
     Dosage: UNK UKN, UNK
  25. BENZONATATE [Concomitant]
     Dosage: UNK UKN, UNK
  26. SKELAXIN [Concomitant]
     Dosage: UNK UKN, UNK

REACTIONS (16)
  - ASTHMA [None]
  - WEIGHT DECREASED [None]
  - MALAISE [None]
  - STRESS [None]
  - HYPERSENSITIVITY [None]
  - COUGH [None]
  - VOMITING [None]
  - NAUSEA [None]
  - DEPRESSION [None]
  - GASTROOESOPHAGEAL REFLUX DISEASE [None]
  - BLOOD PRESSURE ABNORMAL [None]
  - FATIGUE [None]
  - RESTLESS LEGS SYNDROME [None]
  - DIARRHOEA [None]
  - DIABETES MELLITUS [None]
  - BRONCHITIS [None]
